FAERS Safety Report 5612584-6 (Version None)
Quarter: 2008Q1

REPORT INFORMATION
  Report Type: 
  Country: None (occurrence: None)
  Receive Date: 20080204
  Receipt Date: 20080125
  Transmission Date: 20080703
  Serious: Yes (Hospitalization)
  Sender: FDA-Public Use
  Company Number: A0705518A

PATIENT
  Age: 52 Year
  Sex: Female
  Weight: 100 kg

DRUGS (5)
  1. LAPATINIB [Suspect]
     Dosage: 1500MG PER DAY
     Route: 048
     Dates: start: 20071016
  2. BEVACIZUMAB [Suspect]
     Dosage: 10MGK CYCLIC
     Route: 042
     Dates: start: 20071016
  3. SYNTHROID [Concomitant]
     Route: 048
     Dates: start: 20061208
  4. LISINOPRIL [Concomitant]
     Route: 048
     Dates: start: 20061208
  5. DYAZIDE [Concomitant]
     Route: 048
     Dates: start: 20061208

REACTIONS (4)
  - CYANOSIS [None]
  - DEEP VEIN THROMBOSIS [None]
  - ERYTHEMA [None]
  - OEDEMA PERIPHERAL [None]
